FAERS Safety Report 11807059 (Version 2)
Quarter: 2016Q4

REPORT INFORMATION
  Report Type: Spontaneous
  Country: US (occurrence: US)
  Receive Date: 20151207
  Receipt Date: 20161129
  Transmission Date: 20170206
  Serious: No
  Sender: FDA-Public Use
  Company Number: US-ENDO PHARMACEUTICALS INC.-2015-003613

PATIENT
  Age: 42 Year
  Sex: Male
  Weight: 97.61 kg

DRUGS (1)
  1. TESTIM [Suspect]
     Active Substance: TESTOSTERONE
     Indication: HYPOGONADISM
     Route: 061
     Dates: start: 2009, end: 2015

REACTIONS (2)
  - Incorrect dose administered [Recovered/Resolved]
  - Blood testosterone increased [Not Recovered/Not Resolved]

NARRATIVE: CASE EVENT DATE: 20150917
